FAERS Safety Report 17218208 (Version 1)
Quarter: 2020Q1

REPORT INFORMATION
  Report Type: Spontaneous
  Country: CA (occurrence: CA)
  Receive Date: 20191229
  Receipt Date: 20191229
  Transmission Date: 20200409
  Serious: Yes (Disabling)
  Sender: FDA-Public Use
  Company Number: None

PATIENT
  Age: 57 Year
  Sex: Male
  Weight: 92.25 kg

DRUGS (1)
  1. U-DREAM HERBAL SUPPLEMENT [Suspect]
     Active Substance: HERBALS
     Indication: INSOMNIA
     Dosage: ?          QUANTITY:1 CAPSULE(S);?
     Dates: start: 20190601, end: 20191223

REACTIONS (5)
  - Social avoidant behaviour [None]
  - Withdrawal syndrome [None]
  - Anxiety [None]
  - Recalled product [None]
  - Visual impairment [None]

NARRATIVE: CASE EVENT DATE: 20191225
